FAERS Safety Report 16411344 (Version 2)
Quarter: 2021Q3

REPORT INFORMATION
  Report Type: Report from Study
  Country: US (occurrence: US)
  Receive Date: 20190610
  Receipt Date: 20210914
  Transmission Date: 20211014
  Serious: Yes (Other)
  Sender: FDA-Public Use
  Company Number: US-CELGENEUS-USA-20171203316

PATIENT
  Age: 56 Year
  Sex: Female
  Weight: 50.1 kg

DRUGS (32)
  1. REVLIMID [Suspect]
     Active Substance: LENALIDOMIDE
     Dosage: 15 MILLIGRAM
     Route: 048
     Dates: start: 20130115, end: 20131220
  2. DEXAMETHASONE. [Suspect]
     Active Substance: DEXAMETHASONE
     Dosage: 10 MILLIGRAM
     Route: 048
     Dates: start: 20140204, end: 20140506
  3. REVLIMID [Suspect]
     Active Substance: LENALIDOMIDE
     Dosage: 10 MILLIGRAM
     Route: 048
     Dates: start: 20120712, end: 20130114
  4. POMALYST [Suspect]
     Active Substance: POMALIDOMIDE
     Indication: PLASMA CELL MYELOMA
     Dosage: 2 MILLIGRAM
     Route: 048
     Dates: start: 20140204, end: 20140506
  5. MELPHALAN. [Suspect]
     Active Substance: MELPHALAN
     Route: 041
     Dates: start: 20150302, end: 20150302
  6. PANOBINOSTAT [Suspect]
     Active Substance: PANOBINOSTAT
     Dosage: 10 MILLIGRAM
     Route: 048
     Dates: start: 20151105, end: 20160125
  7. IXAZOMIB [Suspect]
     Active Substance: IXAZOMIB
     Dosage: 3 MILLIGRAM
     Route: 048
     Dates: start: 20160109, end: 20161007
  8. DOXORUBICIN [Suspect]
     Active Substance: DOXORUBICIN
     Indication: PLASMA CELL MYELOMA
     Dosage: 7.5 MILLIGRAM/SQ. METER
     Route: 041
     Dates: start: 20170424, end: 20170430
  9. CISPLATIN. [Suspect]
     Active Substance: CISPLATIN
     Indication: PLASMA CELL MYELOMA
     Dosage: 12 MILLIGRAM
     Route: 041
     Dates: start: 20170424, end: 20170430
  10. REVLIMID [Suspect]
     Active Substance: LENALIDOMIDE
     Dosage: 10 MILLIGRAM
     Route: 048
     Dates: start: 20100610, end: 20100805
  11. BORTEZOMIB. [Suspect]
     Active Substance: BORTEZOMIB
     Indication: PLASMA CELL MYELOMA
     Dosage: 1.3 MILLIGRAM/SQ. METER
     Route: 041
     Dates: start: 20100518, end: 20100723
  12. CYCLOPHOSPHAMIDE. [Suspect]
     Active Substance: CYCLOPHOSPHAMIDE
     Indication: PLASMA CELL MYELOMA
     Dosage: 3100 MILLIGRAM
     Route: 041
     Dates: start: 20100818, end: 20100820
  13. IXAZOMIB [Suspect]
     Active Substance: IXAZOMIB
     Indication: PLASMA CELL MYELOMA
     Dosage: 4 MILLIGRAM
     Route: 048
     Dates: start: 20160210, end: 20160609
  14. REVLIMID [Suspect]
     Active Substance: LENALIDOMIDE
     Indication: PLASMA CELL MYELOMA
     Dosage: 25 MILLIGRAM
     Route: 048
     Dates: start: 20100518, end: 20100528
  15. DARATUMUMAB [Suspect]
     Active Substance: DARATUMUMAB
     Dosage: 16 MILLIGRAM/SQ. METER
     Route: 041
     Dates: start: 20161122, end: 20170411
  16. ETOPOSIDE. [Suspect]
     Active Substance: ETOPOSIDE
     Route: 041
     Dates: start: 20170424, end: 20170430
  17. REVLIMID [Suspect]
     Active Substance: LENALIDOMIDE
     Dosage: 10 MILLIGRAM
     Route: 048
     Dates: start: 20110517, end: 20110705
  18. BORTEZOMIB. [Suspect]
     Active Substance: BORTEZOMIB
     Dosage: 1.3 MILLIGRAM/SQ. METER
     Route: 058
     Dates: start: 20150817, end: 20160201
  19. DEXAMETHASONE. [Suspect]
     Active Substance: DEXAMETHASONE
     Dosage: 4 MILLIGRAM
     Route: 041
     Dates: start: 20140527, end: 20150120
  20. DEXAMETHASONE. [Suspect]
     Active Substance: DEXAMETHASONE
     Dosage: 20 MILLIGRAM
     Route: 048
     Dates: start: 20161114, end: 20170411
  21. KYPROLIS [Suspect]
     Active Substance: CARFILZOMIB
     Indication: PLASMA CELL MYELOMA
     Dosage: 20 MILLIGRAM/SQ. METER
     Route: 041
     Dates: start: 20140527, end: 20150120
  22. BORTEZOMIB. [Suspect]
     Active Substance: BORTEZOMIB
     Dosage: 1.3 MILLIGRAM/SQ. METER
     Route: 058
     Dates: start: 20140106, end: 20140131
  23. DEXAMETHASONE. [Suspect]
     Active Substance: DEXAMETHASONE
     Dosage: 10 MILLIGRAM
     Route: 048
     Dates: start: 20150817, end: 20160210
  24. DEXAMETHASONE. [Suspect]
     Active Substance: DEXAMETHASONE
     Dosage: 20 MILLIGRAM
     Route: 048
     Dates: start: 20160210, end: 20161007
  25. CYCLOPHOSPHAMIDE. [Suspect]
     Active Substance: CYCLOPHOSPHAMIDE
     Dosage: 460 MILLIGRAM
     Route: 041
     Dates: start: 20170424, end: 20170430
  26. MELPHALAN. [Suspect]
     Active Substance: MELPHALAN
     Indication: PLASMA CELL MYELOMA
     Dosage: 153 MILLIGRAM
     Route: 041
     Dates: start: 20100914, end: 20100915
  27. PANOBINOSTAT [Suspect]
     Active Substance: PANOBINOSTAT
     Indication: PLASMA CELL MYELOMA
     Dosage: 20 MILLIGRAM
     Route: 048
     Dates: start: 20150817, end: 20151104
  28. DARATUMUMAB [Suspect]
     Active Substance: DARATUMUMAB
     Indication: PLASMA CELL MYELOMA
     Dosage: 8 MILLIGRAM/SQ. METER
     Route: 041
     Dates: start: 20161114, end: 20161115
  29. REVLIMID [Suspect]
     Active Substance: LENALIDOMIDE
     Dosage: 15 MILLIGRAM
     Route: 048
     Dates: start: 20161114, end: 20170411
  30. DEXAMETHASONE. [Suspect]
     Active Substance: DEXAMETHASONE
     Indication: PLASMA CELL MYELOMA
     Dosage: 20 MILLIGRAM
     Route: 048
     Dates: start: 20100518, end: 20100805
  31. DEXAMETHASONE. [Suspect]
     Active Substance: DEXAMETHASONE
     Dosage: 10 MILLIGRAM
     Route: 048
     Dates: start: 20100610, end: 20100805
  32. ETOPOSIDE. [Suspect]
     Active Substance: ETOPOSIDE
     Indication: PLASMA CELL MYELOMA
     Dosage: 930 MILLIGRAM
     Route: 041
     Dates: start: 20100818, end: 20100820

REACTIONS (1)
  - Myelodysplastic syndrome [Recovered/Resolved]

NARRATIVE: CASE EVENT DATE: 20170608
